FAERS Safety Report 21123716 (Version 2)
Quarter: 2022Q4

REPORT INFORMATION
  Report Type: Report from Study
  Country: NL (occurrence: NL)
  Receive Date: 20220725
  Receipt Date: 20221011
  Transmission Date: 20230112
  Serious: Yes (Other)
  Sender: FDA-Public Use
  Company Number: NL-ABBVIE-22K-114-4478977-00

PATIENT
  Age: 84 Year
  Sex: Female
  Weight: 54 kg

DRUGS (7)
  1. CARBIDOPA\LEVODOPA [Suspect]
     Active Substance: CARBIDOPA\LEVODOPA
     Indication: Parkinson^s disease
     Dosage: MD 1.9 ML; CD 1.4 ML/H; ED 1.0 ML; ND 0.0 ML; CND 1.0 ML/H; END 1.0 ML
     Route: 050
     Dates: start: 2014
  2. CARBIDOPA\LEVODOPA [Suspect]
     Active Substance: CARBIDOPA\LEVODOPA
     Dosage: MD 1.9 ML; CD 1.3 ML/H; ED 1.0 ML; ND 0.0 ML; CND 1.0 ML/H; END 1.0 ML
     Route: 050
  3. CARBIDOPA\LEVODOPA [Suspect]
     Active Substance: CARBIDOPA\LEVODOPA
     Dosage: CD 4.0 ML/H
     Route: 050
  4. POLYETHYLENE GLYCOLS [Concomitant]
     Active Substance: POLYETHYLENE GLYCOLS
     Indication: Bowel movement irregularity
  5. OXAZEPAM [Concomitant]
     Active Substance: OXAZEPAM
     Indication: Product used for unknown indication
  6. QUETIAPINE [Concomitant]
     Active Substance: QUETIAPINE
     Indication: Hallucination
  7. Laxans [Concomitant]
     Indication: Bowel movement irregularity

REACTIONS (3)
  - Terminal state [Not Recovered/Not Resolved]
  - Subdural haematoma [Unknown]
  - Fall [Recovered/Resolved]

NARRATIVE: CASE EVENT DATE: 20220721
